FAERS Safety Report 9491968 (Version 1)
Quarter: 2013Q3

REPORT INFORMATION
  Report Type: Spontaneous
  Country: FR (occurrence: FR)
  Receive Date: 20130830
  Receipt Date: 20130830
  Transmission Date: 20140515
  Serious: Yes (Death)
  Sender: FDA-Public Use
  Company Number: FR-PURDUE-GBR-2013-0015460

PATIENT
  Age: 51 Year
  Sex: Male

DRUGS (1)
  1. OXYNORM 10MG/ML SOLUTION INJECTABLE [Suspect]
     Indication: PAIN
     Dosage: 500 MG, DAILY
     Route: 051

REACTIONS (1)
  - Lung cancer metastatic [Fatal]
